FAERS Safety Report 19943492 (Version 1)
Quarter: 2021Q4

REPORT INFORMATION
  Report Type: Report from Study
  Country: GR (occurrence: GR)
  Receive Date: 20211012
  Receipt Date: 20211012
  Transmission Date: 20220303
  Serious: Yes (Other)
  Sender: FDA-Public Use
  Company Number: GR-NOVARTISPH-NVSC2021GR230384

PATIENT
  Sex: Male

DRUGS (1)
  1. OMNITROPE [Suspect]
     Active Substance: SOMATROPIN
     Indication: Growth hormone deficiency
     Dosage: 9 MG, QD
     Route: 065
     Dates: start: 20210617

REACTIONS (5)
  - Blood disorder [Recovered/Resolved]
  - Hypercoagulation [Recovered/Resolved]
  - Injection site haemorrhage [Recovered/Resolved]
  - Product dose omission in error [Unknown]
  - Wrong technique in product usage process [Unknown]

NARRATIVE: CASE EVENT DATE: 20210101
